FAERS Safety Report 15857228 (Version 1)
Quarter: 2019Q1

REPORT INFORMATION
  Report Type: Spontaneous
  Country: GB (occurrence: GB)
  Receive Date: 20190123
  Receipt Date: 20190123
  Transmission Date: 20190417
  Serious: Yes (Other)
  Sender: FDA-Public Use
  Company Number: GB-ACCORD-102995

PATIENT
  Sex: Female
  Weight: 82.9 kg

DRUGS (19)
  1. ATORVASTATIN [Concomitant]
     Active Substance: ATORVASTATIN
  2. TAZOCIN [Concomitant]
     Active Substance: PIPERACILLIN SODIUM\TAZOBACTAM SODIUM
  3. LANSOPRAZOLE. [Concomitant]
     Active Substance: LANSOPRAZOLE
  4. CETOSTEARYL ALCOHOL [Concomitant]
     Active Substance: CETOSTEARYL ALCOHOL
  5. LINEZOLID. [Suspect]
     Active Substance: LINEZOLID
     Indication: ENTEROCOCCAL INFECTION
     Route: 048
     Dates: start: 20171228, end: 20180104
  6. SENNA ALEXANDRINA [Concomitant]
     Active Substance: SENNA LEAF
  7. FOLIC ACID. [Concomitant]
     Active Substance: FOLIC ACID
  8. AMITRIPTYLINE [Suspect]
     Active Substance: AMITRIPTYLINE
     Indication: PRODUCT USED FOR UNKNOWN INDICATION
     Dosage: AT NIGHT
     Route: 048
     Dates: start: 2015, end: 20180103
  9. DIPROBASE [Concomitant]
     Active Substance: CHLOROCRESOL
  10. AMLODIPINE [Concomitant]
     Active Substance: AMLODIPINE BESYLATE
  11. CARBOCISTEINE/CARBOCISTEINE LYSINE/CARBOCISTEINE SODIUM [Concomitant]
  12. PARACETAMOL [Concomitant]
     Active Substance: ACETAMINOPHEN
  13. MENTHOL. [Concomitant]
     Active Substance: MENTHOL
  14. METFORMIN [Concomitant]
     Active Substance: METFORMIN HYDROCHLORIDE
  15. BISOPROLOL [Concomitant]
     Active Substance: BISOPROLOL
  16. OMEPRAZOLE. [Concomitant]
     Active Substance: OMEPRAZOLE
  17. VANCOMYCIN [Concomitant]
     Active Substance: VANCOMYCIN
  18. MEROPENEM. [Concomitant]
     Active Substance: MEROPENEM
  19. DALTEPARIN [Concomitant]
     Active Substance: DALTEPARIN

REACTIONS (7)
  - Vertigo [Unknown]
  - Hypertonia [Unknown]
  - Muscle twitching [Unknown]
  - Coma scale abnormal [Unknown]
  - Clonus [Unknown]
  - Serotonin syndrome [Recovered/Resolved]
  - Off label use [Unknown]

NARRATIVE: CASE EVENT DATE: 20180104
